FAERS Safety Report 7320329-7 (Version None)
Quarter: 2011Q1

REPORT INFORMATION
  Report Type: 
  Country: None (occurrence: None)
  Receive Date: 20110228
  Receipt Date: 20110217
  Transmission Date: 20110831
  Serious: Yes (Other)
  Sender: FDA-Public Use
  Company Number: JP-WATSON-2011-01137

PATIENT
  Age: 29 Year
  Sex: Female
  Weight: 52 kg

DRUGS (2)
  1. DEXAMETHASONE ACETATE [Suspect]
     Indication: NERVE BLOCK
     Dosage: 4 MG, SINGLE
     Route: 008
  2. MEPIVACAINE HYDROCHLORIDE (WATSON LABORATORIES) [Suspect]
     Indication: NERVE BLOCK
     Dosage: 5 ML, SINGLE
     Route: 008

REACTIONS (1)
  - ANAPHYLACTIC REACTION [None]
